FAERS Safety Report 20949410 (Version 1)
Quarter: 2022Q2

REPORT INFORMATION
  Report Type: Report from Study
  Country: US (occurrence: US)
  Receive Date: 20220613
  Receipt Date: 20220613
  Transmission Date: 20220721
  Serious: Yes (Other)
  Sender: FDA-Public Use
  Company Number: US-TAKEDA-2022TUS038447

PATIENT
  Sex: Female

DRUGS (1)
  1. MESALAMINE [Suspect]
     Active Substance: MESALAMINE
     Indication: Product used for unknown indication
     Dosage: 1.2 GRAM, BID
     Route: 048

REACTIONS (3)
  - Crohn^s disease [Recovering/Resolving]
  - Haemorrhage [Recovering/Resolving]
  - Therapy interrupted [Recovering/Resolving]
